FAERS Safety Report 5943321-3 (Version None)
Quarter: 2008Q4

REPORT INFORMATION
  Report Type: 
  Country: None (occurrence: None)
  Receive Date: 20081106
  Receipt Date: 20081030
  Transmission Date: 20090506
  Serious: Yes (Other)
  Sender: FDA-Public Use
  Company Number: PHEH2008US09818

PATIENT
  Age: 35 Year
  Sex: Male

DRUGS (1)
  1. GLEEVEC [Suspect]
     Indication: GASTROINTESTINAL STROMAL TUMOUR
     Dosage: UNK
     Dates: end: 20080601

REACTIONS (1)
  - HEPATIC NEOPLASM MALIGNANT [None]
